FAERS Safety Report 9412736 (Version 2)
Quarter: 2013Q3

REPORT INFORMATION
  Report Type: Report from Study
  Country: MX (occurrence: MX)
  Receive Date: 20130722
  Receipt Date: 20130807
  Transmission Date: 20140515
  Serious: Yes (Life-Threatening, Hospitalization)
  Sender: FDA-Public Use
  Company Number: MX-ROCHE-1251199

PATIENT
  Age: 64 Year
  Sex: Female
  Weight: 52.5 kg

DRUGS (4)
  1. XELODA [Suspect]
     Indication: COLORECTAL CANCER
     Route: 048
     Dates: start: 20091023, end: 201001
  2. XELODA [Suspect]
     Route: 048
     Dates: start: 201207, end: 20130124
  3. OXALIPLATIN [Suspect]
     Indication: COLORECTAL CANCER
     Route: 042
     Dates: start: 20091023, end: 201001
  4. OXALIPLATIN [Suspect]
     Route: 042
     Dates: start: 201207, end: 20130124

REACTIONS (8)
  - Asphyxia [Recovered/Resolved]
  - Nodule [Recovered/Resolved]
  - Disease progression [Not Recovered/Not Resolved]
  - Drug ineffective [Unknown]
  - Diarrhoea [Recovered/Resolved]
  - Constipation [Recovered/Resolved]
  - Temperature intolerance [Recovered/Resolved]
  - Weight decreased [Not Recovered/Not Resolved]
